FAERS Safety Report 8078558-3 (Version None)
Quarter: 2012Q1

REPORT INFORMATION
  Report Type: 
  Country: None (occurrence: None)
  Receive Date: 20120124
  Receipt Date: 20120116
  Transmission Date: 20120608
  Serious: Yes (Hospitalization)
  Sender: FDA-Public Use
  Company Number: AMAG201200006

PATIENT
  Age: 73 Year
  Sex: Female
  Weight: 100.2 kg

DRUGS (10)
  1. LORAZEPAM [Concomitant]
  2. LEVOTHYROXINE SODIUM [Concomitant]
  3. BENADRYL [Concomitant]
  4. HYDROCHLOROTHIAZIDE [Concomitant]
  5. DEMADEX [Concomitant]
  6. FERAHEME [Suspect]
     Indication: IRON DEFICIENCY ANAEMIA
     Dosage: 2 ML, SINGLE (60 MG), IV BOLUS
     Route: 040
     Dates: start: 20120104, end: 20120104
  7. SERTRALINE HYDROCHLORIDE [Concomitant]
  8. ACETAMINOPHEN [Concomitant]
  9. METOPROLOL TARTRATE [Concomitant]
  10. VALSARTAN (VALSARTAN) TABLET, 12.5/160 MG [Concomitant]

REACTIONS (16)
  - DIZZINESS [None]
  - BACK PAIN [None]
  - DEFAECATION URGENCY [None]
  - INFUSION RELATED REACTION [None]
  - ELECTROCARDIOGRAM ST SEGMENT DEPRESSION [None]
  - FATIGUE [None]
  - TREMOR [None]
  - PAIN [None]
  - STARING [None]
  - NAUSEA [None]
  - ASTHENIA [None]
  - COUGH [None]
  - MENTAL STATUS CHANGES [None]
  - APNOEA [None]
  - SYNCOPE [None]
  - DISORIENTATION [None]
